FAERS Safety Report 13376774 (Version 1)
Quarter: 2017Q1

REPORT INFORMATION
  Report Type: Spontaneous
  Country: FR (occurrence: FR)
  Receive Date: 20170328
  Receipt Date: 20170328
  Transmission Date: 20170429
  Serious: Yes (Life-Threatening, Hospitalization)
  Sender: FDA-Public Use
  Company Number: FR-AUROBINDO-AUR-APL-2017-31435

PATIENT
  Age: 60 Year
  Sex: Male

DRUGS (2)
  1. IPRATROPIUM ARROW NEBULISER SOLUTION 0.5/2MG/ML [Suspect]
     Active Substance: IPRATROPIUM
     Indication: CHRONIC OBSTRUCTIVE PULMONARY DISEASE
     Dosage: 1 DF, IN SINGLE INTAKE
     Route: 055
     Dates: start: 20161229, end: 20161229
  2. SALBUTAMOL [Suspect]
     Active Substance: ALBUTEROL
     Indication: CHRONIC OBSTRUCTIVE PULMONARY DISEASE
     Dosage: 1 DF, DAILY
     Route: 055
     Dates: start: 20161225, end: 20161229

REACTIONS (2)
  - Cardio-respiratory arrest [Recovered/Resolved]
  - Bronchospasm paradoxical [Recovered/Resolved]

NARRATIVE: CASE EVENT DATE: 20161229
